FAERS Safety Report 17816361 (Version 2)
Quarter: 2020Q4

REPORT INFORMATION
  Report Type: Spontaneous
  Country: JP (occurrence: JP)
  Receive Date: 20200522
  Receipt Date: 20201119
  Transmission Date: 20210113
  Serious: Yes (Hospitalization, Disabling)
  Sender: FDA-Public Use
  Company Number: JP-ASTRAZENECA-2020SE65567

PATIENT
  Age: 70 Year
  Sex: Male

DRUGS (10)
  1. IMFINZI [Suspect]
     Active Substance: DURVALUMAB
     Indication: NON-SMALL CELL LUNG CANCER
     Route: 041
     Dates: start: 20190927, end: 20191015
  2. NICORANDIL [Concomitant]
     Active Substance: NICORANDIL
     Dosage: DOSE AND FREQUENCY UNKNOWN
     Route: 048
  3. CINAL [Concomitant]
     Dosage: DOSE AND FREQUENCY UNKNOWN
     Route: 048
  4. BENIDIPINE HYDROCHLORIDE [Concomitant]
     Active Substance: BENIDIPINE HYDROCHLORIDE
     Dosage: DOSE AND FREQUENCY UNKNOWN
     Route: 048
  5. FURSULTIAMINE [Concomitant]
     Active Substance: FURSULTIAMINE
     Dosage: DOSE AND FREQUENCY UNKNOWN
     Route: 048
  6. INSULIN GLARGINE BS (BIOSIMILAR 2) [Concomitant]
     Dosage: DOSE AND FREQUENCY UNKNOWN
     Route: 065
  7. URSODEOXYCHOLIC ACID [Concomitant]
     Active Substance: URSODIOL
     Dosage: DOSE AND FREQUENCY UNKNOWN
     Route: 048
  8. NEUROVITAN [Concomitant]
     Active Substance: VITAMINS
     Dosage: DOSE AND FREQUENCY UNKNOWN
     Route: 048
  9. FRANDOL S [Concomitant]
     Active Substance: ISOSORBIDE DINITRATE
     Dosage: DOSE AND FREQUENCY UNKNOWN
     Route: 062
  10. NOVOLIN R [Concomitant]
     Active Substance: INSULIN HUMAN
     Dosage: DOSE AND FREQUENCY UNKNOWN
     Route: 065

REACTIONS (2)
  - Paraneoplastic neurological syndrome [Recovering/Resolving]
  - Encephalopathy [Recovered/Resolved with Sequelae]

NARRATIVE: CASE EVENT DATE: 2019
